FAERS Safety Report 9138056 (Version 2)
Quarter: 2013Q1

REPORT INFORMATION
  Report Type: Report from Study
  Country: US (occurrence: US)
  Receive Date: 20130304
  Receipt Date: 20130326
  Transmission Date: 20140127
  Serious: Yes (Other)
  Sender: FDA-Public Use
  Company Number: US-ACTELION-A-US2013-79930

PATIENT
  Age: 42 Year
  Sex: Female

DRUGS (4)
  1. TRACLEER [Suspect]
     Indication: PULMONARY ARTERIAL HYPERTENSION
     Dosage: UNK
     Route: 048
  2. SILDENAFIL [Concomitant]
  3. COUMADIN [Concomitant]
  4. LASIX [Concomitant]

REACTIONS (1)
  - Sterilisation [Unknown]
